FAERS Safety Report 9167570 (Version 1)
Quarter: 2013Q1

REPORT INFORMATION
  Report Type: Spontaneous
  Country: US (occurrence: US)
  Receive Date: 20130318
  Receipt Date: 20130318
  Transmission Date: 20140127
  Serious: Yes (Hospitalization)
  Sender: FDA-Public Use
  Company Number: US-JNJFOC-20130302863

PATIENT
  Age: 27 Year
  Sex: Male
  Weight: 70.13 kg

DRUGS (4)
  1. REMICADE [Suspect]
     Indication: COLITIS ULCERATIVE
     Route: 042
     Dates: start: 20130220
  2. REMICADE [Suspect]
     Indication: COLITIS ULCERATIVE
     Route: 042
     Dates: start: 20130218, end: 20130218
  3. ASACOL [Concomitant]
     Indication: COLITIS ULCERATIVE
     Route: 065
     Dates: start: 20130215
  4. PREDNISONE [Concomitant]
     Indication: COLITIS ULCERATIVE
     Dosage: TAPERING DOSE
     Route: 048
     Dates: start: 20130204

REACTIONS (4)
  - Deep vein thrombosis [Not Recovered/Not Resolved]
  - Medical device complication [Not Recovered/Not Resolved]
  - Eating disorder [Recovered/Resolved]
  - Drug ineffective [Recovered/Resolved]
